FAERS Safety Report 6617067-2 (Version None)
Quarter: 2010Q1

REPORT INFORMATION
  Report Type: 
  Country: None (occurrence: None)
  Receive Date: 20100307
  Receipt Date: 20100222
  Transmission Date: 20100710
  Serious: Yes (Congenital Anomaly)
  Sender: FDA-Public Use
  Company Number: SE-ELI_LILLY_AND_COMPANY-SE201002007351

PATIENT

DRUGS (4)
  1. CYMBALTA [Suspect]
     Dosage: 60 MG, DAILY (1/D)
     Route: 064
     Dates: end: 20081203
  2. ZOLOFT [Concomitant]
     Dosage: UNK, UNKNOWN
     Route: 064
  3. OXASCAND [Concomitant]
     Dosage: 25 MG, UNK
     Route: 064
     Dates: end: 20081203
  4. LERGIGAN [Concomitant]
     Dosage: UNK, UNKNOWN
     Route: 064

REACTIONS (2)
  - ANOMALY OF EXTERNAL EAR CONGENITAL [None]
  - DRUG EXPOSURE DURING PREGNANCY [None]
